FAERS Safety Report 8328114-4 (Version None)
Quarter: 2012Q2

REPORT INFORMATION
  Report Type: 
  Country: None (occurrence: None)
  Receive Date: 20120502
  Receipt Date: 20120426
  Transmission Date: 20120825
  Serious: Yes (Other)
  Sender: FDA-Public Use
  Company Number: PHHY2012BR036219

PATIENT
  Sex: Female

DRUGS (3)
  1. LIPITOR [Concomitant]
     Indication: BLOOD CHOLESTEROL INCREASED
     Dosage: 1 DF, AT NIGHT
  2. LEVOTHYROXINE SODIUM [Concomitant]
     Dosage: 1 DF, DAILY IN FASTING
  3. ZOLEDRONOC ACID [Suspect]
     Indication: OSTEITIS DEFORMANS
     Dosage: 5 MG/100 ML
     Route: 042
     Dates: start: 20111205

REACTIONS (5)
  - HEADACHE [None]
  - PARATHYROID DISORDER [None]
  - VITAMIN D DEFICIENCY [None]
  - NAUSEA [None]
  - THYROID NEOPLASM [None]
